FAERS Safety Report 18320129 (Version 1)
Quarter: 2020Q3

REPORT INFORMATION
  Report Type: Spontaneous
  Country: US (occurrence: US)
  Receive Date: 20200928
  Receipt Date: 20200928
  Transmission Date: 20201103
  Serious: No
  Sender: FDA-Public Use
  Company Number: US-JNJFOC-20200939796

PATIENT
  Sex: Male

DRUGS (1)
  1. TOPIRAMATE. [Suspect]
     Active Substance: TOPIRAMATE
     Indication: CRANIOCEREBRAL INJURY
     Route: 048

REACTIONS (3)
  - Adverse drug reaction [Unknown]
  - Product use in unapproved indication [Unknown]
  - Off label use [Unknown]
